FAERS Safety Report 10241873 (Version 3)
Quarter: 2014Q3

REPORT INFORMATION
  Report Type: Spontaneous
  Country: US (occurrence: US)
  Receive Date: 20140617
  Receipt Date: 20140717
  Transmission Date: 20150326
  Serious: Yes (Hospitalization)
  Sender: FDA-Public Use
  Company Number: US-GLAXOSMITHKLINE-A1077251A

PATIENT
  Age: 74 Year
  Sex: Male
  Weight: 54.1 kg

DRUGS (1)
  1. ADVAIR HFA [Suspect]
     Active Substance: FLUTICASONE PROPIONATE\SALMETEROL XINAFOATE
     Indication: ASTHMA
     Route: 065

REACTIONS (2)
  - Asthma [Recovering/Resolving]
  - Cardiac arrest [Recovering/Resolving]

NARRATIVE: CASE EVENT DATE: 20140426
